FAERS Safety Report 4772805-9 (Version None)
Quarter: 2005Q3

REPORT INFORMATION
  Report Type: 
  Country: None (occurrence: None)
  Receive Date: 20050915
  Receipt Date: 20050915
  Transmission Date: 20060218
  Serious: Yes (Hospitalization)
  Sender: FDA-Public Use
  Company Number: None

PATIENT
  Age: 86 Year
  Sex: Male
  Weight: 52 kg

DRUGS (12)
  1. PLAVIX [Suspect]
     Dosage: 75MG DAILY PO
     Route: 048
  2. ASPIRIN [Suspect]
     Dosage: 81 MG DAILY PO
     Route: 048
  3. IMDUR [Concomitant]
  4. ASPIRIN [Concomitant]
  5. LISINOPRIL [Concomitant]
  6. LASIX [Concomitant]
  7. POTASSIUM CHLORIDE [Concomitant]
  8. OXYCODONE HCL [Concomitant]
  9. CLARITIN [Concomitant]
  10. PREDNISONE [Concomitant]
  11. PLAVIX [Concomitant]
  12. IBUPROFEN [Concomitant]

REACTIONS (4)
  - GASTRITIS EROSIVE [None]
  - HAEMATEMESIS [None]
  - HAEMATOCHEZIA [None]
  - UPPER GASTROINTESTINAL HAEMORRHAGE [None]
